FAERS Safety Report 10507700 (Version 1)
Quarter: 2014Q4

REPORT INFORMATION
  Report Type: Spontaneous
  Country: US (occurrence: None)
  Receive Date: 20141008
  Receipt Date: 20141008
  Transmission Date: 20150528
  Serious: Yes (Disabling)
  Sender: FDA-Public Use
  Company Number: None

PATIENT
  Age: 75 Year
  Sex: Male
  Weight: 81.65 kg

DRUGS (1)
  1. JANUMET [Suspect]
     Active Substance: METFORMIN HYDROCHLORIDE\SITAGLIPTIN PHOSPHATE
     Indication: TYPE 2 DIABETES MELLITUS
     Dosage: 1000 MG, 2X/DAY, ORAL
     Route: 048
     Dates: start: 201006, end: 201404

REACTIONS (8)
  - Fatigue [None]
  - Dysstasia [None]
  - Rhinorrhoea [None]
  - Asthenia [None]
  - Abasia [None]
  - Tremor [None]
  - Balance disorder [None]
  - Feeling jittery [None]

NARRATIVE: CASE EVENT DATE: 20140404
